FAERS Safety Report 9768679 (Version 1)
Quarter: 2013Q4

REPORT INFORMATION
  Report Type: Spontaneous
  Country: DE (occurrence: DE)
  Receive Date: 20131218
  Receipt Date: 20131218
  Transmission Date: 20140711
  Serious: Yes (Hospitalization)
  Sender: FDA-Public Use
  Company Number: DE-BIOGENIDEC-2013BI119560

PATIENT
  Age: 25 Year
  Sex: Female

DRUGS (3)
  1. AVONEX [Suspect]
     Indication: CLINICALLY ISOLATED SYNDROME
     Route: 030
     Dates: start: 20121201
  2. AVONEX [Suspect]
     Route: 030
     Dates: start: 20121201
  3. IBUPROFEN [Concomitant]
     Indication: PROPHYLAXIS

REACTIONS (3)
  - Optic neuritis [Recovered/Resolved with Sequelae]
  - Borrelia test positive [Recovered/Resolved with Sequelae]
  - Viral test positive [Recovered/Resolved with Sequelae]
